FAERS Safety Report 19798893 (Version 1)
Quarter: 2021Q3

REPORT INFORMATION
  Report Type: Spontaneous
  Country: FR (occurrence: FR)
  Receive Date: 20210907
  Receipt Date: 20210907
  Transmission Date: 20211014
  Serious: Yes (Death)
  Sender: FDA-Public Use
  Company Number: FR-TEVA-2021-FR-1949132

PATIENT
  Age: 29 Year
  Sex: Male

DRUGS (4)
  1. TRAMADOL BASE [Suspect]
     Active Substance: TRAMADOL
     Indication: PRODUCT USED FOR UNKNOWN INDICATION
     Dosage: THERAPY START DATE: NASK
     Route: 065
     Dates: end: 202008
  2. DIAZEPAM. [Suspect]
     Active Substance: DIAZEPAM
     Indication: PRODUCT USED FOR UNKNOWN INDICATION
     Dosage: THERAPY START DATE: NASK
     Route: 065
     Dates: end: 202008
  3. PROPRANOLOL [Suspect]
     Active Substance: PROPRANOLOL HYDROCHLORIDE
     Indication: PRODUCT USED FOR UNKNOWN INDICATION
     Dosage: THERAPY START DATE: NASK
     Route: 065
     Dates: end: 202008
  4. ALCOOL [Suspect]
     Active Substance: ALCOHOL
     Dosage: THERAPY STAR DATE: NASK
     Route: 065
     Dates: end: 202008

REACTIONS (1)
  - Drug abuse [Fatal]
